FAERS Safety Report 19839716 (Version 1)
Quarter: 2021Q3

REPORT INFORMATION
  Report Type: Spontaneous
  Country: US (occurrence: US)
  Receive Date: 20210916
  Receipt Date: 20210916
  Transmission Date: 20211014
  Serious: No
  Sender: FDA-Public Use
  Company Number: US-BSC-2021000025

PATIENT
  Age: 72 Year
  Sex: Female

DRUGS (5)
  1. CHONDROITIN SULFATE [Concomitant]
     Active Substance: CHONDROITIN SULFATE (BOVINE)
  2. ALEVE [Concomitant]
     Active Substance: NAPROXEN SODIUM
  3. MULTI VITAMIN [Concomitant]
     Active Substance: VITAMINS
  4. GLUCOSAMINE [Concomitant]
     Active Substance: GLUCOSAMINE
  5. VARITHENA [Suspect]
     Active Substance: POLIDOCANOL
     Dosage: UNIQUE CANISTER NUMBER 202?00210833
     Dates: start: 20210316, end: 20210316

REACTIONS (4)
  - Product quality issue [Unknown]
  - No adverse event [Unknown]
  - Wrong technique in product usage process [Unknown]
  - Incorrect dose administered [Unknown]

NARRATIVE: CASE EVENT DATE: 20210316
